FAERS Safety Report 9993687 (Version 1)
Quarter: 2014Q1

REPORT INFORMATION
  Report Type: Spontaneous
  Country: US (occurrence: US)
  Receive Date: 20140310
  Receipt Date: 20140310
  Transmission Date: 20141002
  Serious: Yes (Other)
  Sender: FDA-Public Use
  Company Number: CHPA2014US003569

PATIENT
  Age: 67 Year
  Sex: Male

DRUGS (2)
  1. ASCRIPTIN - UNKNOWN FORMULA [Suspect]
     Indication: ARTHRITIS
     Dosage: UNK UNK, QD
     Route: 048
  2. ASCRIPTIN - UNKNOWN FORMULA [Suspect]
     Indication: OFF LABEL USE

REACTIONS (3)
  - Diabetes mellitus [Not Recovered/Not Resolved]
  - Therapeutic response unexpected [Unknown]
  - Incorrect drug administration duration [Unknown]
